FAERS Safety Report 9748127 (Version 2)
Quarter: 2013Q4

REPORT INFORMATION
  Report Type: Spontaneous
  Country: US (occurrence: US)
  Receive Date: 20131212
  Receipt Date: 20131216
  Transmission Date: 20140711
  Serious: Yes (Other)
  Sender: FDA-Public Use
  Company Number: US-PFIZER INC-2013355356

PATIENT
  Age: 57 Year
  Sex: Female
  Weight: 77.1 kg

DRUGS (5)
  1. CHANTIX [Suspect]
     Indication: SMOKING CESSATION THERAPY
     Dosage: 0.5 MG, 1X/DAY
     Route: 048
     Dates: start: 20131111, end: 201311
  2. CHANTIX [Suspect]
     Dosage: 1 MG, 2X/DAY
     Route: 048
     Dates: start: 201311, end: 20131210
  3. CHANTIX [Suspect]
     Dosage: 0.5MG IN MORNING AND 1MG IN EVENING
     Route: 048
     Dates: start: 20131211
  4. AUGMENTIN [Suspect]
     Dosage: UNK, 2X/DAY
     Route: 048
     Dates: start: 20131122, end: 20131201
  5. ALEVE [Concomitant]
     Indication: ARTHRITIS
     Dosage: UNK

REACTIONS (2)
  - Laryngeal disorder [Unknown]
  - Nausea [Not Recovered/Not Resolved]
